FAERS Safety Report 25364585 (Version 1)
Quarter: 2025Q2

REPORT INFORMATION
  Report Type: Spontaneous
  Country: ES (occurrence: ES)
  Receive Date: 20250527
  Receipt Date: 20250527
  Transmission Date: 20250716
  Serious: Yes (Life-Threatening, Hospitalization, Other)
  Sender: MYLAN
  Company Number: ES-ADAMEDSLU-1030

PATIENT
  Age: 44 Year
  Sex: Male

DRUGS (7)
  1. CLOZAPINE [Suspect]
     Active Substance: CLOZAPINE
     Indication: Mania
     Dosage: 25 MILLIGRAM, QD (DRUG WITHDRAW STARTED ON DAY 21 OF HOSPITALIZATION)
  2. CLOZAPINE [Suspect]
     Active Substance: CLOZAPINE
  3. OLANZAPINE [Concomitant]
     Active Substance: OLANZAPINE
  4. LITHIUM CARBONATE [Concomitant]
     Active Substance: LITHIUM CARBONATE
  5. VALPROIC ACID [Concomitant]
     Active Substance: VALPROIC ACID
  6. CLOTHIAPINE [Concomitant]
     Active Substance: CLOTHIAPINE
  7. ZOLPIDEM [Concomitant]
     Active Substance: ZOLPIDEM TARTRATE

REACTIONS (2)
  - Myocarditis [Recovered/Resolved]
  - Substance abuse [Unknown]
